FAERS Safety Report 4457479-9 (Version None)
Quarter: 2004Q3

REPORT INFORMATION
  Report Type: 
  Country: None (occurrence: None)
  Receive Date: 20040922
  Receipt Date: 20040914
  Transmission Date: 20050211
  Serious: Yes (Death, Other)
  Sender: FDA-Public Use
  Company Number: USA-2003-0009419

PATIENT
  Age: 47 Year
  Sex: Male

DRUGS (8)
  1. OXYCONTIN [Suspect]
     Indication: PAIN
     Dosage: 80 MG, BID, ORAL
     Route: 048
     Dates: start: 20000701, end: 20010601
  2. EFFEXOR [Suspect]
     Dosage: 75 MG, HS, ORAL
     Route: 048
  3. XANAX [Suspect]
     Dosage: 1, ORAL
     Route: 048
  4. MEPROBAMATE [Suspect]
     Dosage: MG, ORAL
     Route: 048
  5. SOMA [Suspect]
     Dosage: 1 TABLET, QID, ORAL
     Route: 048
  6. COCAINE (COCAINE) [Suspect]
  7. COUMADIN [Concomitant]
  8. OXYIR [Concomitant]

REACTIONS (31)
  - ALCOHOL POISONING [None]
  - APNOEA [None]
  - ARTERIOSCLEROSIS [None]
  - CARDIAC ARREST [None]
  - CHEST WALL PAIN [None]
  - COMA [None]
  - CORONARY ARTERY OCCLUSION [None]
  - DEPRESSED LEVEL OF CONSCIOUSNESS [None]
  - DEPRESSION [None]
  - DIARRHOEA [None]
  - DRUG DEPENDENCE [None]
  - DRUG WITHDRAWAL SYNDROME [None]
  - GASTRIC DISORDER [None]
  - HEADACHE [None]
  - HYPERHIDROSIS [None]
  - INSOMNIA [None]
  - IRRITABILITY [None]
  - MULTIPLE DRUG OVERDOSE [None]
  - MYOCARDIAL FIBROSIS [None]
  - NAUSEA [None]
  - NERVOUSNESS [None]
  - OESOPHAGEAL SPASM [None]
  - POLYSUBSTANCE ABUSE [None]
  - SCAR [None]
  - SNORING [None]
  - TOXICOLOGIC TEST ABNORMAL [None]
  - TREMOR [None]
  - VENTRICULAR ARRHYTHMIA [None]
  - VENTRICULAR FIBRILLATION [None]
  - VOMITING [None]
  - WEIGHT DECREASED [None]
